FAERS Safety Report 7723355-9 (Version None)
Quarter: 2011Q3

REPORT INFORMATION
  Report Type: 
  Country: None (occurrence: None)
  Receive Date: 20110901
  Receipt Date: 20110503
  Transmission Date: 20111222
  Serious: No
  Sender: FDA-Public Use
  Company Number: US-KINGPHARMUSA00001-K201100530

PATIENT
  Sex: Female

DRUGS (1)
  1. SONATA [Suspect]
     Dosage: UNK
     Route: 048
     Dates: start: 20110401

REACTIONS (1)
  - INSOMNIA [None]
